FAERS Safety Report 9266927 (Version 1)
Quarter: 2013Q2

REPORT INFORMATION
  Report Type: Spontaneous
  Country: DE (occurrence: GB)
  Receive Date: 20130502
  Receipt Date: 20130502
  Transmission Date: 20140414
  Serious: Yes (Life-Threatening, Hospitalization, Other)
  Sender: FDA-Public Use
  Company Number: GB-FRI-1000044832

PATIENT
  Age: 84 Year
  Sex: Male

DRUGS (7)
  1. MEMANTINE [Suspect]
     Indication: DEMENTIA ALZHEIMER^S TYPE
     Dosage: 20 MG
     Route: 048
     Dates: start: 20120901
  2. CLOPIDOGREL [Concomitant]
  3. DIGOXIN [Concomitant]
  4. FINASTERIDE [Concomitant]
  5. LEVOTHYROXINE [Concomitant]
  6. SIMVASTATIN [Concomitant]
  7. TAMSULOSIN [Concomitant]

REACTIONS (1)
  - Partial seizures with secondary generalisation [Recovered/Resolved]
